FAERS Safety Report 9838078 (Version 1)
Quarter: 2014Q1

REPORT INFORMATION
  Report Type: Spontaneous
  Country: JP (occurrence: JP)
  Receive Date: 20140123
  Receipt Date: 20140123
  Transmission Date: 20141002
  Serious: Yes (Hospitalization, Other)
  Sender: FDA-Public Use
  Company Number: JP-ROXANE LABORATORIES, INC.-2014-RO-00076RO

PATIENT
  Age: 60 Year
  Sex: Female

DRUGS (10)
  1. METHOTREXATE [Suspect]
     Indication: POLYARTERITIS NODOSA
  2. AZATHIOPRINE [Suspect]
     Indication: POLYARTERITIS NODOSA
     Dosage: 100 MG
  3. METHYLPREDNISOLONE [Suspect]
     Indication: POLYARTERITIS NODOSA
  4. PREDNISOLONE [Suspect]
     Indication: POLYARTERITIS NODOSA
     Dosage: 50 MG
  5. LAMIVUDINE [Suspect]
     Indication: POLYARTERITIS NODOSA
     Dosage: 100 MG
  6. CYCLOSPORINE [Suspect]
     Indication: POLYARTERITIS NODOSA
     Dosage: 100 MG
  7. ADEFOVIR [Suspect]
     Indication: HEPATITIS B
     Dosage: 10 MG
     Dates: start: 200611
  8. TACROLIMUS [Suspect]
     Indication: POLYARTERITIS NODOSA
     Dosage: 2 MG
  9. COLCHICINE [Suspect]
     Indication: POLYARTERITIS NODOSA
     Dosage: 1.5 MG
  10. CYCLOPHOSPHAMIDE [Suspect]
     Indication: POLYARTERITIS NODOSA
     Route: 042

REACTIONS (6)
  - Polyarteritis nodosa [Recovered/Resolved]
  - Lumbar vertebral fracture [Unknown]
  - Hepatitis B [Recovered/Resolved]
  - Pancytopenia [Recovered/Resolved]
  - Liver function test abnormal [Recovered/Resolved]
  - Renal impairment [Recovered/Resolved]
